FAERS Safety Report 9011546 (Version 2)
Quarter: 2013Q1

REPORT INFORMATION
  Report Type: Spontaneous
  Country: CA (occurrence: CA)
  Receive Date: 20130108
  Receipt Date: 20130222
  Transmission Date: 20140127
  Serious: Yes (Death, Life-Threatening, Hospitalization)
  Sender: FDA-Public Use
  Company Number: CA-CELGENEUS-028-21880-12071483

PATIENT
  Age: 68 Year
  Sex: Male
  Weight: 90.5 kg

DRUGS (47)
  1. REVLIMID [Suspect]
     Indication: PLASMA CELL MYELOMA
     Dosage: 25 MILLIGRAM
     Route: 048
     Dates: start: 20120510
  2. DEXAMETHASONE [Suspect]
     Indication: PLASMA CELL MYELOMA
     Dosage: 28 MILLIGRAM
     Route: 048
     Dates: start: 20120510
  3. ELOTUZUMAB [Suspect]
     Indication: PLASMA CELL MYELOMA
     Route: 065
  4. SENOKOT [Concomitant]
     Indication: ADVERSE EVENT
     Dosage: 200 MILLIGRAM
     Route: 065
     Dates: start: 20120530, end: 20120703
  5. SENOKOT [Concomitant]
     Dosage: 25.8 MILLIGRAM
     Route: 065
     Dates: start: 20120704
  6. COLACE [Concomitant]
     Indication: ADVERSE EVENT
     Route: 065
     Dates: start: 20120530
  7. AMLODIPINE [Concomitant]
     Indication: PRODUCT USED FOR UNKNOWN INDICATION
     Route: 065
     Dates: start: 20110901, end: 20120517
  8. AMLODIPINE [Concomitant]
     Route: 065
     Dates: start: 20120518, end: 20120712
  9. RABEPRAZOLE [Concomitant]
     Indication: PRODUCT USED FOR UNKNOWN INDICATION
     Route: 065
     Dates: start: 20120509
  10. RABEPRAZOLE [Concomitant]
     Route: 065
     Dates: start: 20120709, end: 20120712
  11. NITROGLYCERIN [Concomitant]
     Indication: PRODUCT USED FOR UNKNOWN INDICATION
     Route: 065
     Dates: start: 20120509, end: 20120509
  12. NITROGLYCERIN [Concomitant]
     Indication: ADVERSE EVENT
     Route: 065
     Dates: start: 20120705
  13. TYLENOL ARTHRITIS [Concomitant]
     Indication: PRODUCT USED FOR UNKNOWN INDICATION
     Route: 065
     Dates: start: 20120418
  14. ATORVASTATIN [Concomitant]
     Indication: PRODUCT USED FOR UNKNOWN INDICATION
     Route: 065
     Dates: start: 20020101
  15. DOCUSATE [Concomitant]
     Indication: PRODUCT USED FOR UNKNOWN INDICATION
     Route: 065
     Dates: start: 20110901
  16. METOPROLOL [Concomitant]
     Indication: PRODUCT USED FOR UNKNOWN INDICATION
     Route: 065
     Dates: start: 19900101
  17. ASA [Concomitant]
     Indication: PRODUCT USED FOR UNKNOWN INDICATION
     Route: 065
     Dates: start: 19900101
  18. DALTEPARIN [Concomitant]
     Indication: ADVERSE EVENT
     Route: 065
     Dates: start: 20120709, end: 20120712
  19. VITAMIN B12 [Concomitant]
     Indication: PRODUCT USED FOR UNKNOWN INDICATION
     Route: 065
     Dates: start: 20110901
  20. FOLIC ACID [Concomitant]
     Indication: PRODUCT USED FOR UNKNOWN INDICATION
     Route: 065
     Dates: start: 20110901
  21. AMOXICILLIN [Concomitant]
     Indication: PRODUCT USED FOR UNKNOWN INDICATION
     Route: 065
     Dates: start: 20120703, end: 20120710
  22. AMOXICILLIN [Concomitant]
     Route: 065
     Dates: start: 20120709, end: 20120709
  23. NORMAL SALINE [Concomitant]
     Indication: ADVERSE EVENT
     Route: 065
     Dates: start: 20120606, end: 20120606
  24. PAMIDRONATE [Concomitant]
     Indication: PRODUCT USED FOR UNKNOWN INDICATION
     Route: 065
     Dates: start: 20120126
  25. BLOOD [Concomitant]
     Indication: PRODUCT USED FOR UNKNOWN INDICATION
     Dosage: 3 UNITS
     Route: 041
     Dates: start: 2012, end: 2012
  26. BISACODYL [Concomitant]
     Indication: ADVERSE EVENT
     Route: 065
     Dates: start: 20120918, end: 20120920
  27. SODIUM BIPHOSPHATE [Concomitant]
     Indication: ADVERSE EVENT
     Route: 065
     Dates: start: 20120918, end: 20120920
  28. AMITRIPTYLINE [Concomitant]
     Indication: ADVERSE EVENT
     Route: 065
     Dates: start: 20120918, end: 20120920
  29. MORPHINE [Concomitant]
     Indication: ADVERSE EVENT
     Route: 065
     Dates: start: 20120916, end: 20120920
  30. LORAZEPAM [Concomitant]
     Indication: ADVERSE EVENT
     Route: 065
     Dates: start: 20120911, end: 20120911
  31. LORAZEPAM [Concomitant]
     Route: 065
     Dates: start: 20120912, end: 20120912
  32. LORAZEPAM [Concomitant]
     Route: 065
     Dates: start: 20120913, end: 20120913
  33. LORAZEPAM [Concomitant]
     Route: 065
     Dates: start: 20120914, end: 20120914
  34. LORAZEPAM [Concomitant]
     Route: 065
     Dates: start: 20120915, end: 20120920
  35. DOMPERIDONE [Concomitant]
     Indication: ADVERSE EVENT
     Route: 065
     Dates: start: 20120915, end: 20120920
  36. CYANOCOBALAMIN [Concomitant]
     Indication: ADVERSE EVENT
     Route: 065
     Dates: start: 20120709, end: 20120712
  37. LANSOPRAZOLE [Concomitant]
     Indication: ADVERSE EVENT
     Route: 065
     Dates: start: 20120709, end: 20120709
  38. FUROSEMIDE [Concomitant]
     Indication: ADVERSE EVENT
     Route: 065
     Dates: start: 20120816, end: 20120817
  39. FUROSEMIDE [Concomitant]
     Route: 065
     Dates: start: 20120817, end: 20120817
  40. HEPARIN [Concomitant]
     Indication: ADVERSE EVENT
     Route: 065
     Dates: start: 20120817, end: 20120820
  41. HEPARIN [Concomitant]
     Route: 065
     Dates: start: 20120909, end: 20120909
  42. SODIUM CHLORIDE [Concomitant]
     Indication: ADVERSE EVENT
     Route: 065
     Dates: start: 20120817, end: 20120819
  43. SODIUM CHLORIDE [Concomitant]
     Route: 065
     Dates: start: 20120909, end: 20120920
  44. DULOXETINE [Concomitant]
     Indication: ADVERSE EVENT
     Route: 065
     Dates: start: 20120908, end: 20120920
  45. DIGOXIN [Concomitant]
     Indication: ADVERSE EVENT
     Route: 065
     Dates: start: 20120909, end: 20120909
  46. DIGOXIN [Concomitant]
     Route: 065
     Dates: start: 20120910, end: 20120910
  47. DIGOXIN [Concomitant]
     Route: 065
     Dates: start: 20120911, end: 20120920

REACTIONS (6)
  - Renal failure acute [Fatal]
  - Plasma cell myeloma [Fatal]
  - Myocardial infarction [Not Recovered/Not Resolved]
  - Myocardial ischaemia [Recovered/Resolved]
  - Acute myocardial infarction [Recovered/Resolved with Sequelae]
  - Anaemia [Recovered/Resolved]
